FAERS Safety Report 4459440-7 (Version None)
Quarter: 2004Q3

REPORT INFORMATION
  Report Type: 
  Country: None (occurrence: None)
  Receive Date: 20040927
  Receipt Date: 20040916
  Transmission Date: 20050211
  Serious: Yes (Death)
  Sender: FDA-Public Use
  Company Number: NO-GLAXOSMITHKLINE-B0346106A

PATIENT
  Sex: Female

DRUGS (1)
  1. LEUKERAN [Suspect]

REACTIONS (1)
  - LEUKAEMIA [None]
